FAERS Safety Report 8450379-9 (Version None)
Quarter: 2012Q2

REPORT INFORMATION
  Report Type: 
  Country: None (occurrence: None)
  Receive Date: 20120620
  Receipt Date: 20120620
  Transmission Date: 20120825
  Serious: Yes (Death, Hospitalization, Other)
  Sender: FDA-Public Use
  Company Number: US-PFIZER INC-2008US-19584

PATIENT
  Age: 52 Year
  Sex: Male

DRUGS (2)
  1. VERAPAMIL HCL [Suspect]
     Dosage: UNK
     Route: 065
  2. ATENOLOL [Suspect]
     Dosage: UNK
     Route: 065

REACTIONS (7)
  - BRADYCARDIA [None]
  - OVERDOSE [None]
  - PERIPHERAL COLDNESS [None]
  - GASTROINTESTINAL SOUNDS ABNORMAL [None]
  - SHOCK [None]
  - ANURIA [None]
  - HYPOTENSION [None]
